FAERS Safety Report 12766583 (Version 1)
Quarter: 2016Q3

REPORT INFORMATION
  Report Type: Spontaneous
  Country: US (occurrence: US)
  Receive Date: 20160921
  Receipt Date: 20160921
  Transmission Date: 20161109
  Serious: No
  Sender: FDA-Public Use
  Company Number: US-009507513-1609USA000698

PATIENT

DRUGS (1)
  1. DULERA [Suspect]
     Active Substance: FORMOTEROL FUMARATE DIHYDRATE\MOMETASONE FUROATE
     Dosage: DOSE: 100/5 MICROGRAMS
     Route: 055
     Dates: start: 201408

REACTIONS (3)
  - Product quality issue [Unknown]
  - No adverse event [Unknown]
  - Incorrect dose administered [Unknown]
